FAERS Safety Report 5694492-8 (Version None)
Quarter: 2008Q2

REPORT INFORMATION
  Report Type: 
  Country: None (occurrence: None)
  Receive Date: 20080404
  Receipt Date: 20080326
  Transmission Date: 20081010
  Serious: Yes (Other)
  Sender: FDA-Public Use
  Company Number: EG-ELI_LILLY_AND_COMPANY-EG200801004162

PATIENT
  Age: 70 Year
  Sex: Female

DRUGS (5)
  1. TERIPARATIDE [Suspect]
     Indication: OSTEOPOROSIS POSTMENOPAUSAL
     Dosage: 20 UG, DAILY (1/D)
     Route: 058
     Dates: start: 20070401
  2. ZITHROMAX [Concomitant]
     Indication: BRONCHITIS
     Dosage: UNK UNK, DAILY (1/D)
     Route: 065
  3. SULPIRIDE [Concomitant]
     Dosage: UNK, UNKNOWN
     Route: 065
  4. QUIBRON-T [Concomitant]
     Indication: ASTHMA
     Dosage: UNK, UNKNOWN
     Route: 065
  5. COTAREG [Concomitant]
     Indication: HYPERTENSION
     Dosage: UNK, UNKNOWN
     Route: 065

REACTIONS (3)
  - BACK PAIN [None]
  - HYPOAESTHESIA [None]
  - LIMB DISCOMFORT [None]
